FAERS Safety Report 13132534 (Version 1)
Quarter: 2017Q1

REPORT INFORMATION
  Report Type: Spontaneous
  Country: US (occurrence: US)
  Receive Date: 20170120
  Receipt Date: 20170120
  Transmission Date: 20170428
  Serious: No
  Sender: FDA-Public Use
  Company Number: US-TEVA-683957USA

PATIENT
  Sex: Female

DRUGS (3)
  1. CROMOGLICIC ACID [Suspect]
     Active Substance: CROMOLYN
     Indication: ASTHMA
  2. CROMOGLICIC ACID [Suspect]
     Active Substance: CROMOLYN
     Indication: BRONCHITIS
  3. CROMOGLICIC ACID [Suspect]
     Active Substance: CROMOLYN
     Indication: NASAL CONGESTION
     Route: 055

REACTIONS (2)
  - Inappropriate schedule of drug administration [Unknown]
  - Sinus disorder [Not Recovered/Not Resolved]
